FAERS Safety Report 4784155-5 (Version None)
Quarter: 2005Q3

REPORT INFORMATION
  Report Type: 
  Country: None (occurrence: None)
  Receive Date: 20050930
  Receipt Date: 20050808
  Transmission Date: 20060218
  Serious: No
  Sender: FDA-Public Use
  Company Number: US-GLAXOSMITHKLINE-A0569242A

PATIENT
  Age: 5 Year
  Sex: Male

DRUGS (2)
  1. FLOVENT [Suspect]
     Indication: ASTHMA
     Dosage: 1PUFF PER DAY
     Route: 055
     Dates: start: 20050701
  2. NO CONCURRENT MEDICATION [Concomitant]

REACTIONS (3)
  - GASTROENTERITIS VIRAL [None]
  - HEADACHE [None]
  - VOMITING [None]
